FAERS Safety Report 24347453 (Version 3)
Quarter: 2025Q3

REPORT INFORMATION
  Report Type: Spontaneous
  Country: US (occurrence: US)
  Receive Date: 20240922
  Receipt Date: 20250927
  Transmission Date: 20251021
  Serious: Yes (Hospitalization, Other)
  Sender: SANOFI AVENTIS
  Company Number: US-SA-2024SA267949

PATIENT
  Age: 76 Year
  Sex: Male
  Weight: 72.73 kg

DRUGS (12)
  1. DUPIXENT [Suspect]
     Active Substance: DUPILUMAB
     Indication: Nasal polyps
     Dosage: 300 MG, QOW
     Route: 058
     Dates: end: 202306
  2. DUPIXENT [Suspect]
     Active Substance: DUPILUMAB
     Dosage: 300 MG, Q6W
     Route: 058
  3. LECITHIN [Concomitant]
     Active Substance: LECITHIN
  4. OMEGA 3 2100 [Concomitant]
  5. VITAMINS NOS [Concomitant]
     Active Substance: VITAMINS
  6. ZINC GLUCONATE [Concomitant]
     Active Substance: ZINC GLUCONATE
  7. D1000 [Concomitant]
  8. SAW PALMETTO PROSTATE COMFORT [Concomitant]
  9. VITAMIN E [Concomitant]
     Active Substance: .ALPHA.-TOCOPHEROL
  10. CALCIUM [Concomitant]
     Active Substance: CALCIUM
  11. ASCORBIC ACID [Concomitant]
     Active Substance: ASCORBIC ACID
  12. VITAMIN B COMPLEX [Concomitant]
     Active Substance: CYANOCOBALAMIN\DEXPANTHENOL\NIACINAMIDE\PYRIDOXINE HYDROCHLORIDE\RIBOFLAVIN 5^-PHOSPHATE SODIUM\THIA

REACTIONS (7)
  - Pituitary tumour [Unknown]
  - Brain neoplasm [Unknown]
  - Sinus polyp [Unknown]
  - Hyposmia [Unknown]
  - Hypogeusia [Unknown]
  - Product prescribing issue [Unknown]
  - Inappropriate schedule of product administration [Unknown]
